FAERS Safety Report 7553721-6 (Version None)
Quarter: 2011Q2

REPORT INFORMATION
  Report Type: 
  Country: None (occurrence: None)
  Receive Date: 20110614
  Receipt Date: 20110614
  Transmission Date: 20111010
  Serious: Yes (Other)
  Sender: FDA-Public Use
  Company Number: None

PATIENT
  Age: 49 Year
  Sex: Male
  Weight: 102.0593 kg

DRUGS (2)
  1. SIMVASTATIN [Suspect]
     Dosage: 10MG PER DAY PO
     Route: 048
  2. RAMIPRIL [Suspect]
     Dosage: 5MG PER DAY PO
     Route: 048

REACTIONS (8)
  - FATIGUE [None]
  - IMPAIRED DRIVING ABILITY [None]
  - IMPAIRED WORK ABILITY [None]
  - MALAISE [None]
  - COGNITIVE DISORDER [None]
  - ECONOMIC PROBLEM [None]
  - LETHARGY [None]
  - HEADACHE [None]
